FAERS Safety Report 19391268 (Version 1)
Quarter: 2021Q2

REPORT INFORMATION
  Report Type: Spontaneous
  Country: US (occurrence: US)
  Receive Date: 20210609
  Receipt Date: 20210609
  Transmission Date: 20210717
  Serious: Yes (Hospitalization, Other)
  Sender: FDA-Public Use
  Company Number: US-HIKMA PHARMACEUTICALS USA INC.-US-H14001-21-02679

PATIENT
  Age: 75 Year
  Sex: Male

DRUGS (2)
  1. WARFARIN [Suspect]
     Active Substance: WARFARIN
     Indication: THROMBOSIS PROPHYLAXIS
     Dosage: UNKNOWN
     Route: 065
  2. HEPARIN [Suspect]
     Active Substance: HEPARIN SODIUM
     Indication: THROMBOSIS PROPHYLAXIS
     Dosage: UNKNOWN
     Route: 065

REACTIONS (3)
  - Circulatory collapse [Recovering/Resolving]
  - Pericardial haemorrhage [Recovering/Resolving]
  - Cardiac tamponade [Recovering/Resolving]
